FAERS Safety Report 6752014-4 (Version None)
Quarter: 2010Q2

REPORT INFORMATION
  Report Type: 
  Country: None (occurrence: None)
  Receive Date: 20100602
  Receipt Date: 20100527
  Transmission Date: 20101027
  Serious: Yes (Hospitalization)
  Sender: FDA-Public Use
  Company Number: IL-MERCK-1005ISR00037

PATIENT
  Age: 75 Year
  Sex: Male

DRUGS (1)
  1. JANUMET [Suspect]
     Route: 048
     Dates: start: 20100401, end: 20100401

REACTIONS (6)
  - COUGH [None]
  - PERICARDITIS [None]
  - PLEURAL EFFUSION [None]
  - PYREXIA [None]
  - RHINORRHOEA [None]
  - VIRAL INFECTION [None]
